FAERS Safety Report 6406890-5 (Version None)
Quarter: 2009Q4

REPORT INFORMATION
  Report Type: 
  Country: None (occurrence: None)
  Receive Date: 20091015
  Receipt Date: 20091007
  Transmission Date: 20100525
  Serious: Yes (Death)
  Sender: FDA-Public Use
  Company Number: 401389

PATIENT
  Age: 29 Year
  Sex: Male

DRUGS (6)
  1. METHOTREXATE [Suspect]
     Indication: ACUTE LYMPHOCYTIC LEUKAEMIA
     Dosage: INTRATHECAL
     Route: 037
  2. (THERAPEUTIC RADIOPHARMACEUTICALS) [Suspect]
     Indication: ACUTE LYMPHOCYTIC LEUKAEMIA
     Dosage: 2400 CGY,; 1000 CGY
  3. CYTARABINE [Concomitant]
  4. ETOPOSIDE [Concomitant]
  5. MITOXANTRONE HYDROCHLORIDE [Concomitant]
  6. CYCLOPHOSPHAMIDE [Concomitant]

REACTIONS (11)
  - ALLOGENIC BONE MARROW TRANSPLANTATION THERAPY [None]
  - BRAIN STEM SYNDROME [None]
  - DIZZINESS [None]
  - GRAFT VERSUS HOST DISEASE [None]
  - HYPOAESTHESIA FACIAL [None]
  - LEUKAEMIA RECURRENT [None]
  - LEUKAEMIC INFILTRATION [None]
  - MOOD SWINGS [None]
  - PERSONALITY CHANGE [None]
  - PRIMITIVE NEUROECTODERMAL TUMOUR [None]
  - RESPIRATORY FAILURE [None]
